FAERS Safety Report 9639879 (Version 2)
Quarter: 2013Q4

REPORT INFORMATION
  Report Type: Report from Study
  Country: US (occurrence: US)
  Receive Date: 20131023
  Receipt Date: 20131025
  Transmission Date: 20140711
  Serious: Yes (Hospitalization, Other)
  Sender: FDA-Public Use
  Company Number: US-UCBSA-100947

PATIENT
  Age: 31 Year
  Sex: Female
  Weight: 85.73 kg

DRUGS (17)
  1. CIMZIA [Suspect]
     Indication: CROHN^S DISEASE
     Dosage: 2 SYRINGES PER KIT; DISPENSE PRE-FILLED SYRINGES
     Route: 058
     Dates: start: 20120330
  2. MIRALAX [Concomitant]
     Dosage: 3350 POWDER;
     Route: 048
  3. RIFAXIMIN [Concomitant]
     Indication: CROHN^S DISEASE
     Dosage: 550 MG TABLET; 1 TABLET 2 TIMES DAILY. TAKE FOR 1 WEEK EVERY MONTH
     Route: 048
     Dates: start: 20130409
  4. RIFAXIMIN [Concomitant]
     Indication: CROHN^S DISEASE
     Dosage: 55 MG TABLET; 1 TABLET BY MOUTH 2 TIMES DAILY. TAKE FOR 1 WEEK EVERY MONTH
     Route: 048
     Dates: start: 20110507, end: 20130114
  5. TYLENOL [Concomitant]
     Dosage: 1000 MG EVERY 6 HOURS AS NEEDED
     Route: 048
  6. POLYETHYLENE GLYCOL [Concomitant]
  7. IMURAN [Concomitant]
     Route: 048
  8. FOLIC ACID [Concomitant]
     Dosage: 1 MG, 4 TABLETS
     Route: 048
  9. MULTIVITAMINS [Concomitant]
     Dosage: 2 TABLETS BY MOUTH. ADULT GUMMY CHEWS WITHOUT IRON
     Route: 048
  10. TYLENOL [Concomitant]
     Dosage: 1000 MG ONCE IN 6 HOURS AS REQUIRED
  11. OMEPRAZOLE [Concomitant]
     Dosage: 20 MG
     Route: 048
  12. PATADAY [Concomitant]
     Dosage: 0.2% DROP; 1 DROP DAILY AS REQUIRED
  13. PRILOSEC [Concomitant]
     Route: 048
  14. FLORASTOR [Concomitant]
     Route: 048
  15. TRAMADOL [Concomitant]
     Dosage: 50 MG
  16. VITAMIN D [Concomitant]
     Dosage: 2000 UNIT CAPSULE
     Route: 048
  17. AZATHIOPRINE [Concomitant]
     Route: 048

REACTIONS (3)
  - Abortion spontaneous [Recovered/Resolved]
  - Abdominal pain [Recovered/Resolved]
  - Pregnancy [Recovered/Resolved]
